FAERS Safety Report 20825822 (Version 2)
Quarter: 2022Q3

REPORT INFORMATION
  Report Type: Report from Study
  Country: US (occurrence: US)
  Receive Date: 20220513
  Receipt Date: 20220812
  Transmission Date: 20221027
  Serious: No
  Sender: FDA-Public Use
  Company Number: US-PHARMACOVIGILANCE-US-KAD-22-00274

PATIENT
  Sex: Female

DRUGS (2)
  1. BELUMOSUDIL [Suspect]
     Active Substance: BELUMOSUDIL
     Indication: Product used for unknown indication
     Dosage: 200 MILLIGRAM, QD
     Route: 065
     Dates: start: 20211030, end: 20220528
  2. BELUMOSUDIL [Suspect]
     Active Substance: BELUMOSUDIL
     Dosage: 200 MILLIGRAM, QD
     Route: 065
     Dates: start: 20220531

REACTIONS (3)
  - Blood pressure abnormal [Unknown]
  - Heart rate increased [Recovering/Resolving]
  - Fatigue [Unknown]
